FAERS Safety Report 14670344 (Version 2)
Quarter: 2018Q2

REPORT INFORMATION
  Report Type: Spontaneous
  Country: US (occurrence: US)
  Receive Date: 20180322
  Receipt Date: 20180622
  Transmission Date: 20180711
  Serious: No
  Sender: FDA-Public Use
  Company Number: US-ADAMAS PHARMA, LLC-2017ADA00011

PATIENT
  Age: 70 Year
  Sex: Female

DRUGS (14)
  1. SINEMET [Concomitant]
     Active Substance: CARBIDOPA\LEVODOPA
  2. REMICADE [Concomitant]
     Active Substance: INFLIXIMAB
  3. VITAMIN D [Concomitant]
     Active Substance: CHOLECALCIFEROL
  4. FOLIC ACID. [Concomitant]
     Active Substance: FOLIC ACID
  5. GOCOVRI [Suspect]
     Active Substance: AMANTADINE
     Indication: DYSKINESIA
     Dosage: 137 MG, 1X/DAY AT BEDTIME
     Route: 048
     Dates: start: 20171111, end: 20171117
  6. NEUPRO [Concomitant]
     Active Substance: ROTIGOTINE
  7. GOCOVRI [Suspect]
     Active Substance: AMANTADINE
     Dosage: 137 MG, 1X/DAY AT BEDTIME
     Route: 048
  8. RYTARY [Concomitant]
     Active Substance: CARBIDOPA\LEVODOPA
  9. METHOTREXATE. [Concomitant]
     Active Substance: METHOTREXATE
  10. MAGNESIUM [Concomitant]
     Active Substance: MAGNESIUM
  11. GOCOVRI [Suspect]
     Active Substance: AMANTADINE
     Dosage: 274 MG, 1X/DAY AT BEDTIME
     Route: 048
     Dates: start: 20171118
  12. COLACE [Concomitant]
     Active Substance: DOCUSATE SODIUM
  13. ASPIRIN. [Concomitant]
     Active Substance: ASPIRIN
  14. SENNA [Concomitant]
     Active Substance: SENNA LEAF\SENNOSIDES\SENNOSIDES A AND B

REACTIONS (7)
  - Hallucination [Recovering/Resolving]
  - Constipation [Not Recovered/Not Resolved]
  - Sleep talking [Not Recovered/Not Resolved]
  - Vision blurred [Not Recovered/Not Resolved]
  - Dry mouth [Recovering/Resolving]
  - Amnesia [Not Recovered/Not Resolved]
  - Anxiety [Not Recovered/Not Resolved]

NARRATIVE: CASE EVENT DATE: 201711
